FAERS Safety Report 4784525-5 (Version None)
Quarter: 2005Q3

REPORT INFORMATION
  Report Type: 
  Country: None (occurrence: None)
  Receive Date: 20050930
  Receipt Date: 20050922
  Transmission Date: 20060218
  Serious: Yes (Other)
  Sender: FDA-Public Use
  Company Number: 13102728

PATIENT
  Age: 42 Year
  Sex: Male

DRUGS (9)
  1. LAMIVUDINE [Suspect]
     Route: 065
     Dates: start: 19970301
  2. ABACAVIR [Suspect]
     Route: 065
     Dates: start: 19980801
  3. SUSTIVA [Suspect]
     Route: 048
     Dates: start: 19980801
  4. VIDEX [Suspect]
     Route: 048
     Dates: start: 19960101, end: 19970301
  5. ZERIT [Suspect]
     Route: 065
     Dates: start: 19970401
  6. RITONAVIR [Suspect]
     Route: 065
     Dates: start: 19970301
  7. INDINAVIR [Suspect]
     Route: 065
  8. TENOFOVIR DISOPROXIL FUMARATE [Suspect]
     Route: 065
     Dates: start: 20031201
  9. ZIDOVUDINE [Concomitant]
     Route: 065
     Dates: start: 19930101

REACTIONS (6)
  - ACQUIRED IMMUNODEFICIENCY SYNDROME [None]
  - ADRENAL INSUFFICIENCY [None]
  - CYTOMEGALOVIRUS CHORIORETINITIS [None]
  - HYPOGONADISM [None]
  - LIPOATROPHY [None]
  - LIPODYSTROPHY ACQUIRED [None]
